FAERS Safety Report 12484296 (Version 1)
Quarter: 2016Q2

REPORT INFORMATION
  Report Type: Spontaneous
  Country: US (occurrence: US)
  Receive Date: 20160621
  Receipt Date: 20160621
  Transmission Date: 20160815
  Serious: No
  Sender: FDA-Public Use
  Company Number: US-BAYER-2016-116369

PATIENT
  Age: 83 Year
  Sex: Male

DRUGS (2)
  1. SORAFENIB (RAF KINASE INHIBITOR) [Suspect]
     Active Substance: SORAFENIB
     Indication: ANGIOSARCOMA
     Dosage: 400 MG, QD
     Dates: start: 201211, end: 2012
  2. SORAFENIB (RAF KINASE INHIBITOR) [Suspect]
     Active Substance: SORAFENIB
     Indication: ANGIOSARCOMA
     Dosage: 800 MG, QD
     Dates: start: 201212

REACTIONS (1)
  - Off label use [None]
